FAERS Safety Report 9391199 (Version 1)
Quarter: 2013Q3

REPORT INFORMATION
  Report Type: Spontaneous
  Country: FR (occurrence: FR)
  Receive Date: 20130709
  Receipt Date: 20130709
  Transmission Date: 20140515
  Serious: Yes (Hospitalization)
  Sender: FDA-Public Use
  Company Number: FR-PFIZER INC-2013196374

PATIENT
  Age: 58 Year
  Sex: Male

DRUGS (5)
  1. TAHOR [Suspect]
     Indication: CARDIAC DISORDER
     Dosage: 80 MG, DAILY (1 DF)
     Route: 048
     Dates: start: 20130401, end: 20130410
  2. KREDEX [Suspect]
     Indication: CARDIAC DISORDER
     Dosage: 6.25 MG, DAILY (2 DF)
     Route: 048
     Dates: start: 20130401, end: 20130410
  3. COVERSYL [Suspect]
     Indication: CARDIAC DISORDER
     Dosage: 5 MG, DAILY (1 DF)
     Route: 048
     Dates: start: 20130401, end: 20130410
  4. KARDEGIC [Suspect]
     Indication: CARDIAC DISORDER
     Dosage: 75 MG, DAILY (1 DF)
     Route: 048
     Dates: start: 20130401, end: 20130410
  5. BRILIQUE [Suspect]
     Indication: CARDIAC DISORDER
     Dosage: 90 MG, DAILY (1 DF)
     Route: 048
     Dates: start: 20130401, end: 20130410

REACTIONS (5)
  - Vomiting [Recovered/Resolved]
  - Drug eruption [Recovered/Resolved]
  - Pruritus [Recovered/Resolved]
  - Pyrexia [Recovered/Resolved]
  - Hepatic enzyme increased [Recovered/Resolved]
